FAERS Safety Report 6127322-0 (Version None)
Quarter: 2009Q1

REPORT INFORMATION
  Report Type: 
  Country: None (occurrence: None)
  Receive Date: 20090319
  Receipt Date: 20090309
  Transmission Date: 20090719
  Serious: Yes (Other)
  Sender: FDA-Public Use
  Company Number: 1-17779271

PATIENT
  Age: 85 Year
  Sex: Male

DRUGS (7)
  1. CIPROFLOXACIN [Suspect]
     Indication: URINARY TRACT INFECTION
     Dates: start: 20070226, end: 20070301
  2. MIRTAZAPINE [Concomitant]
  3. CARBIDOPA [Concomitant]
  4. TAMSULOSIN HCL [Concomitant]
  5. FINASTERIDE [Concomitant]
  6. TRAVOPROST [Concomitant]
  7. METIPRANOL OPHTHALMIC SOLUTION [Concomitant]

REACTIONS (7)
  - ELEVATED MOOD [None]
  - FEELING ABNORMAL [None]
  - INSOMNIA [None]
  - MANIA [None]
  - PRESSURE OF SPEECH [None]
  - TACHYPHRENIA [None]
  - TANGENTIALITY [None]
